FAERS Safety Report 13891871 (Version 1)
Quarter: 2017Q3

REPORT INFORMATION
  Report Type: Spontaneous
  Country: FR (occurrence: FR)
  Receive Date: 20170822
  Receipt Date: 20170822
  Transmission Date: 20171127
  Serious: Yes (Hospitalization)
  Sender: FDA-Public Use
  Company Number: FR-ROCHE-1981522

PATIENT
  Age: 56 Year
  Sex: Female

DRUGS (14)
  1. CACIT VITAMIN D3 [Concomitant]
     Active Substance: CALCIUM CARBONATE\CHOLECALCIFEROL
  2. ALPRAZOLAM. [Concomitant]
     Active Substance: ALPRAZOLAM
     Route: 065
  3. TRAMETINIB [Concomitant]
     Active Substance: TRAMETINIB
     Dosage: FULL DOSE
     Route: 065
     Dates: start: 20170712
  4. SERETIDE [Concomitant]
     Active Substance: FLUTICASONE PROPIONATE\SALMETEROL XINAFOATE
  5. DABRAFENIB [Concomitant]
     Active Substance: DABRAFENIB
     Dosage: HALF-DOSE
     Route: 065
     Dates: start: 20170616
  6. VEMURAFENIB. [Suspect]
     Active Substance: VEMURAFENIB
     Indication: METASTATIC MALIGNANT MELANOMA
     Route: 048
     Dates: start: 20170505, end: 20170521
  7. XGEVA [Concomitant]
     Active Substance: DENOSUMAB
     Route: 065
  8. TARDYFERON (FRANCE) [Concomitant]
     Active Substance: FERROUS SULFATE\GASTRIC MUCIN
  9. DABRAFENIB [Concomitant]
     Active Substance: DABRAFENIB
     Dosage: FULL DOSE
     Route: 065
     Dates: start: 20170712
  10. COAPROVEL [Concomitant]
     Active Substance: HYDROCHLOROTHIAZIDE\IRBESARTAN
     Dosage: 300/12.5
     Route: 065
  11. INEXIUM [Concomitant]
     Active Substance: ESOMEPRAZOLE
     Dosage: 40
     Route: 065
  12. COBIMETINIB. [Suspect]
     Active Substance: COBIMETINIB
     Indication: METASTATIC MALIGNANT MELANOMA
     Route: 048
     Dates: start: 20170505, end: 20170521
  13. TRAMETINIB [Concomitant]
     Active Substance: TRAMETINIB
     Dosage: HALF-DOSE
     Route: 065
     Dates: start: 20170616
  14. DAFALGAN CODEINE [Concomitant]
     Active Substance: ACETAMINOPHEN\CODEINE PHOSPHATE
     Dosage: 500/30
     Route: 065

REACTIONS (1)
  - Drug reaction with eosinophilia and systemic symptoms [Recovered/Resolved]

NARRATIVE: CASE EVENT DATE: 20170518
